FAERS Safety Report 8567102 (Version 2)
Quarter: 2012Q4

REPORT INFORMATION
  Report Type: Report from Study
  Country: US (occurrence: US)
  Receive Date: 20120517
  Receipt Date: 20121009
  Transmission Date: 20130627
  Serious: Yes (Death, Hospitalization)
  Sender: FDA-Public Use
  Company Number: US-CELGENEUS-163-50794-12051604

PATIENT
  Age: 52 Year
  Sex: Female
  Weight: 103.5 kg

DRUGS (6)
  1. VIDAZA [Suspect]
     Indication: ACUTE MYELOID LEUKEMIA NOS
     Dosage: 75 milligram/sq. meter
     Route: 058
     Dates: start: 20120210, end: 20120216
  2. VORINOSTAT [Suspect]
     Indication: ACUTE MYELOID LEUKEMIA NOS
     Dosage: 400 Milligram
     Route: 048
     Dates: start: 20120210, end: 20120218
  3. GEMTUZUMAB OZOGAMICIN [Suspect]
     Indication: ACUTE MYELOID LEUKEMIA NOS
     Dosage: 3 milligram/sq. meter
     Route: 041
     Dates: start: 20120210, end: 20120217
  4. STEROIDS [Concomitant]
     Indication: WHEEZING
     Route: 065
  5. ATC NEBS [Concomitant]
     Indication: WHEEZING
     Route: 065
  6. RIBAVARIN [Concomitant]
     Indication: DRUG USE FOR UNKNOWN INDICATION
     Route: 065

REACTIONS (8)
  - Atelectasis [Fatal]
  - Hypoxia [Unknown]
  - Respiratory failure [Unknown]
  - Sepsis [Unknown]
  - Confusional state [Unknown]
  - Colitis [Unknown]
  - Multi-organ failure [Unknown]
  - Haemorrhage intracranial [Unknown]
